FAERS Safety Report 8573105-1 (Version None)
Quarter: 2012Q3

REPORT INFORMATION
  Report Type: 
  Country: None (occurrence: None)
  Receive Date: 20120806
  Receipt Date: 20120726
  Transmission Date: 20120928
  Serious: Yes (Hospitalization)
  Sender: FDA-Public Use
  Company Number: JP-ACTELION-A-CH2012-67632

PATIENT
  Age: 6 Year
  Sex: Female
  Weight: 18.3 kg

DRUGS (14)
  1. GLYCYRRHIZIC ACID, AMMONIUM SALT [Concomitant]
  2. METHIONINE [Concomitant]
  3. TOPIRAMATE [Concomitant]
  4. LAMOTRIGINE [Concomitant]
  5. BACLOFEN [Concomitant]
  6. SODIUM HYALURONATE [Concomitant]
  7. BRAZAVES [Suspect]
     Indication: NIEMANN-PICK DISEASE
     Dosage: 100 MG, BID
     Route: 048
     Dates: start: 20120608
  8. CARBOCISTEINE [Concomitant]
  9. GLYCINE [Concomitant]
  10. HEPARIN SODIUM [Concomitant]
  11. AMLODIPINE BESYLATE [Concomitant]
  12. VALPROATE SODIUM [Concomitant]
  13. OXYGEN [Concomitant]
  14. FAMOTIDINE [Concomitant]

REACTIONS (7)
  - DYSPHAGIA [None]
  - SALIVARY HYPERSECRETION [None]
  - PYREXIA [None]
  - CHEST X-RAY ABNORMAL [None]
  - BRONCHOSTENOSIS [None]
  - BRONCHOPNEUMONIA [None]
  - ANTIBIOTIC RESISTANT STAPHYLOCOCCUS TEST POSITIVE [None]
